FAERS Safety Report 9378678 (Version 1)
Quarter: 2013Q2

REPORT INFORMATION
  Report Type: Spontaneous
  Country: JP (occurrence: None)
  Receive Date: 20130626
  Receipt Date: 20130626
  Transmission Date: 20140414
  Serious: Yes (Hospitalization, Other)
  Sender: FDA-Public Use
  Company Number: ADR-2013-01053

PATIENT
  Sex: Female

DRUGS (9)
  1. GABALON INTRATHECAL [Suspect]
  2. RINLAXER 250 MG [Concomitant]
  3. MAGNESIUM OXIDE 1 MG [Concomitant]
  4. FERROMIA 40 MG [Concomitant]
  5. DECADRON [Concomitant]
  6. PHENOBAL [Concomitant]
  7. GASTER [Concomitant]
  8. ALFAROL [Concomitant]
  9. DANTRIUM [Concomitant]

REACTIONS (2)
  - Cerebrospinal fluid leakage [None]
  - Myotonia [None]
